FAERS Safety Report 17871046 (Version 2)
Quarter: 2020Q3

REPORT INFORMATION
  Report Type: Spontaneous
  Country: US (occurrence: US)
  Receive Date: 20200608
  Receipt Date: 20200709
  Transmission Date: 20201103
  Serious: Yes (Death)
  Sender: FDA-Public Use
  Company Number: NVSC2020US158097

PATIENT
  Age: 25 Year

DRUGS (7)
  1. VINCRISTINE [Suspect]
     Active Substance: VINCRISTINE
     Indication: BURKITT^S LYMPHOMA
     Dosage: 0.4 MG/M2 ON DAY 1,2,3,4
     Route: 042
  2. FILGRASTIM [Suspect]
     Active Substance: FILGRASTIM
     Indication: BURKITT^S LYMPHOMA
     Dosage: 480 UG, QD ON DAY 6?15
     Route: 058
  3. CYCLOPHOSPHAMIDE. [Suspect]
     Active Substance: CYCLOPHOSPHAMIDE
     Indication: BURKITT^S LYMPHOMA
     Dosage: 750 MG/M2 ON DAY 5
     Route: 042
  4. RITUXIMAB. [Suspect]
     Active Substance: RITUXIMAB
     Indication: BURKITT^S LYMPHOMA
     Dosage: 375 MG/M2, ON DAY 1,5
     Route: 042
  5. ETOPOSIDE. [Suspect]
     Active Substance: ETOPOSIDE
     Indication: BURKITT^S LYMPHOMA
     Dosage: 60 MG/M2, ON DAY 1,2,3,4
     Route: 042
  6. PREDNISONE. [Suspect]
     Active Substance: PREDNISONE
     Indication: BURKITT^S LYMPHOMA
     Dosage: 60 MG/M2, BID ON DAY 1,2,3,4,5
     Route: 048
  7. DOXORUBICIN [Suspect]
     Active Substance: DOXORUBICIN
     Indication: BURKITT^S LYMPHOMA
     Dosage: 10 MG/M2 ON DAY 1,2,3,4
     Route: 042

REACTIONS (4)
  - Cholangiocarcinoma [Fatal]
  - Toxicity to various agents [Fatal]
  - Product use in unapproved indication [Unknown]
  - Second primary malignancy [Fatal]
